FAERS Safety Report 5572976-0 (Version None)
Quarter: 2007Q4

REPORT INFORMATION
  Report Type: 
  Country: None (occurrence: None)
  Receive Date: 20071224
  Receipt Date: 20071214
  Transmission Date: 20080405
  Serious: Yes (Hospitalization)
  Sender: FDA-Public Use
  Company Number: FR-JNJFOC-20071203739

PATIENT
  Age: 66 Year
  Sex: Male

DRUGS (3)
  1. OFLOCET [Suspect]
     Indication: PYELONEPHRITIS
     Route: 042
  2. ROCEPHIN [Suspect]
     Indication: PYELONEPHRITIS
     Route: 042
  3. IMOVANE [Concomitant]
     Indication: SLEEP DISORDER
     Route: 048

REACTIONS (1)
  - NEUTROPENIA [None]
